FAERS Safety Report 21917226 (Version 1)
Quarter: 2023Q1

REPORT INFORMATION
  Report Type: Spontaneous
  Country: AU (occurrence: AU)
  Receive Date: 20230126
  Receipt Date: 20230126
  Transmission Date: 20230418
  Serious: Yes (Hospitalization, Other)
  Sender: FDA-Public Use
  Company Number: AU-JNJFOC-20230134532

PATIENT
  Age: 27 Year
  Sex: Female

DRUGS (3)
  1. TOPIRAMATE [Suspect]
     Active Substance: TOPIRAMATE
     Indication: Product used for unknown indication
     Route: 048
  2. AGOMELATINE [Concomitant]
     Active Substance: AGOMELATINE
  3. IRON [Concomitant]
     Active Substance: IRON

REACTIONS (5)
  - Blindness transient [Unknown]
  - Headache [Unknown]
  - Hypoaesthesia [Unknown]
  - Dizziness [Unknown]
  - Angle closure glaucoma [Unknown]

NARRATIVE: CASE EVENT DATE: 20210508
